FAERS Safety Report 5298645-2 (Version None)
Quarter: 2007Q1

REPORT INFORMATION
  Report Type: 
  Country: None (occurrence: None)
  Receive Date: 20070201
  Receipt Date: 20061104
  Transmission Date: 20070707
  Serious: No
  Sender: FDA-Public Use
  Company Number: 2006PV024639

PATIENT
  Age: 59 Year
  Sex: Female
  Weight: 82.5547 kg

DRUGS (9)
  1. BYETTA [Suspect]
     Indication: DIABETES MELLITUS NON-INSULIN-DEPENDENT
     Dosage: SEE IMAGE
     Route: 058
     Dates: start: 20060912, end: 20061012
  2. BYETTA [Suspect]
     Indication: DIABETES MELLITUS NON-INSULIN-DEPENDENT
     Dosage: SEE IMAGE
     Route: 058
     Dates: start: 20061013
  3. METFORMIN [Concomitant]
  4. PREVACID [Concomitant]
  5. REQUIP [Concomitant]
  6. KLONOPIN [Concomitant]
  7. ATELENOL [Concomitant]
  8. LISINOPRIL [Concomitant]
  9. LIPITOR [Concomitant]

REACTIONS (2)
  - BLOOD GLUCOSE FLUCTUATION [None]
  - VISION BLURRED [None]
